FAERS Safety Report 6188868-2 (Version None)
Quarter: 2009Q2

REPORT INFORMATION
  Report Type: 
  Country: None (occurrence: None)
  Receive Date: 20090513
  Receipt Date: 20090501
  Transmission Date: 20091009
  Serious: Yes (Other)
  Sender: FDA-Public Use
  Company Number: PHHY2009GB17282

PATIENT
  Sex: Male

DRUGS (3)
  1. TEGRETOL [Suspect]
     Dosage: 200 MG, UNK
  2. DESOGESTREL AND ETHINYL ESTRADIOL [Concomitant]
  3. CODEINE SUL TAB [Concomitant]
     Indication: BACK PAIN

REACTIONS (6)
  - AGGRESSION [None]
  - ANXIETY [None]
  - DYSURIA [None]
  - PAIN [None]
  - SKIN DISORDER [None]
  - WRONG DRUG ADMINISTERED [None]
